FAERS Safety Report 19109575 (Version 2)
Quarter: 2021Q2

REPORT INFORMATION
  Report Type: Spontaneous
  Country: PT (occurrence: PT)
  Receive Date: 20210408
  Receipt Date: 20210420
  Transmission Date: 20210717
  Serious: Yes (Other)
  Sender: FDA-Public Use
  Company Number: PT-PFIZER INC-2021327680

PATIENT
  Age: 71 Year
  Sex: Female

DRUGS (4)
  1. AMLODIPINE [Suspect]
     Active Substance: AMLODIPINE BESYLATE
     Dosage: UNK
  2. INDAPAMIDE. [Suspect]
     Active Substance: INDAPAMIDE
     Dosage: UNK
  3. PERINDOPRIL [Suspect]
     Active Substance: PERINDOPRIL
     Dosage: UNK
  4. PAROXETINE. [Suspect]
     Active Substance: PAROXETINE
     Dosage: UNK

REACTIONS (7)
  - Dysgeusia [Unknown]
  - Hypokalaemia [Unknown]
  - Weight decreased [Unknown]
  - Decreased appetite [Recovered/Resolved]
  - Nausea [Unknown]
  - Asthenia [Unknown]
  - Hyponatraemia [Recovered/Resolved]
